FAERS Safety Report 8565017-4 (Version None)
Quarter: 2012Q3

REPORT INFORMATION
  Report Type: 
  Country: None (occurrence: None)
  Receive Date: 20120803
  Receipt Date: 20100719
  Transmission Date: 20120928
  Serious: Yes (Other)
  Sender: FDA-Public Use
  Company Number: CO-PFIZER INC-2012186366

PATIENT
  Age: 74 Year
  Sex: Female

DRUGS (10)
  1. METFORMIN [Concomitant]
     Dosage: 850 MG, 2X/DAY
  2. LIPITOR [Suspect]
     Indication: DYSLIPIDAEMIA
     Dosage: 10 MG, 1X/DAY
  3. ISOSORBIDE DINITRATE [Concomitant]
     Dosage: 10 MG, 1X/DAY
  4. METOPROLOL TARTRATE [Concomitant]
     Dosage: 100 MG, 2X/DAY
  5. AMLODIPINE [Concomitant]
     Dosage: 5 MG, 2X/DAY
  6. METOPROLOL TARTRATE [Concomitant]
     Dosage: 100 MG, 1X/DAY
  7. ACETYLSALICYLIC ACID [Concomitant]
     Dosage: 100 MG, 1X/DAY
  8. METFORMIN [Concomitant]
     Dosage: 850 MG, 1X/DAY
  9. LOSARTAN [Concomitant]
     Dosage: 100 MG, 2X/DAY
  10. GLIBENCLAMIDE [Concomitant]
     Dosage: 5 MG, 3X/DAY

REACTIONS (1)
  - HYPERTENSIVE EMERGENCY [None]
